FAERS Safety Report 5810599-6 (Version None)
Quarter: 2008Q3

REPORT INFORMATION
  Report Type: 
  Country: None (occurrence: None)
  Receive Date: 20080715
  Receipt Date: 20080709
  Transmission Date: 20090109
  Serious: Yes (Other)
  Sender: FDA-Public Use
  Company Number: GB-PFIZER INC-2008057570

PATIENT
  Sex: Female

DRUGS (1)
  1. FLUCONAZOLE [Suspect]

REACTIONS (1)
  - COSTOCHONDRITIS [None]
